FAERS Safety Report 25680196 (Version 1)
Quarter: 2025Q3

REPORT INFORMATION
  Report Type: Report from Study
  Country: US (occurrence: US)
  Receive Date: 20250814
  Receipt Date: 20250814
  Transmission Date: 20251020
  Serious: Yes (Hospitalization)
  Sender: SUNOVION
  Company Number: US-SUMITOMO PHARMA SWITZERLAND GMBH-2025SPA007015

PATIENT
  Age: 70 Year
  Sex: Male

DRUGS (26)
  1. ORGOVYX [Suspect]
     Active Substance: RELUGOLIX
     Indication: Prostate cancer
     Dosage: 360 MG, SINGLE
     Route: 048
     Dates: start: 20211104, end: 20211104
  2. ORGOVYX [Suspect]
     Active Substance: RELUGOLIX
     Dosage: 120 MG, QD
     Route: 048
     Dates: start: 20211105, end: 202401
  3. ORGOVYX [Suspect]
     Active Substance: RELUGOLIX
     Dosage: 360 MG, SINGLE
     Route: 048
     Dates: start: 20250530, end: 20250530
  4. ORGOVYX [Suspect]
     Active Substance: RELUGOLIX
     Route: 048
  5. ABIRATERONE [Concomitant]
     Active Substance: ABIRATERONE
  6. ALBUTEROL SULFATE [Concomitant]
     Active Substance: ALBUTEROL SULFATE
  7. ALENDRONATE SODIUM [Concomitant]
     Active Substance: ALENDRONATE SODIUM
  8. ATORVASTATIN [Concomitant]
     Active Substance: ATORVASTATIN
  9. ASPIRIN [Concomitant]
     Active Substance: ASPIRIN
  10. CLOPIDOGREL [Concomitant]
     Active Substance: CLOPIDOGREL BISULFATE
  11. CYCLOBENZAPRINE [Concomitant]
     Active Substance: CYCLOBENZAPRINE
  12. ENTRESTO [Concomitant]
     Active Substance: SACUBITRIL\VALSARTAN
  13. FOLIC ACID [Concomitant]
     Active Substance: FOLIC ACID
  14. METOPROLOL [Concomitant]
     Active Substance: METOPROLOL
  15. NITROGLYCERIN [Concomitant]
     Active Substance: NITROGLYCERIN
     Route: 060
  16. PANTOPRAZOLE [Concomitant]
     Active Substance: PANTOPRAZOLE
  17. PREDNISONE [Concomitant]
     Active Substance: PREDNISONE
  18. TAMSULOSIN [Concomitant]
     Active Substance: TAMSULOSIN
  19. TRAMADOL [Concomitant]
     Active Substance: TRAMADOL
  20. TRELEGY ELLIPTA [Concomitant]
     Active Substance: FLUTICASONE FUROATE\UMECLIDINIUM BROMIDE\VILANTEROL TRIFENATATE
  21. XARELTO [Concomitant]
     Active Substance: RIVAROXABAN
  22. ZETIA [Concomitant]
     Active Substance: EZETIMIBE
  23. LOPERAMIDE [Concomitant]
     Active Substance: LOPERAMIDE
  24. NITROSTAT [Concomitant]
     Active Substance: NITROGLYCERIN
  25. PLAVIX [Concomitant]
     Active Substance: CLOPIDOGREL BISULFATE
  26. FLEXERIL [Concomitant]
     Active Substance: CYCLOBENZAPRINE HYDROCHLORIDE

REACTIONS (3)
  - Chronic obstructive pulmonary disease [Unknown]
  - Weight decreased [Unknown]
  - Hot flush [Not Recovered/Not Resolved]
